FAERS Safety Report 19426428 (Version 9)
Quarter: 2021Q4

REPORT INFORMATION
  Report Type: Report from Study
  Country: GB (occurrence: GB)
  Receive Date: 20210617
  Receipt Date: 20211006
  Transmission Date: 20220303
  Serious: Yes (Hospitalization)
  Sender: FDA-Public Use
  Company Number: GB-ROCHE-1198165

PATIENT
  Age: 65 Year
  Sex: Male
  Weight: 94 kg

DRUGS (23)
  1. BEVACIZUMAB [Suspect]
     Active Substance: BEVACIZUMAB
     Indication: Gastric cancer
     Dosage: DATE OF MOST RECENT ADMINISTRATION: 06/MAR/2012
     Route: 042
     Dates: start: 20120124
  2. BEVACIZUMAB [Suspect]
     Active Substance: BEVACIZUMAB
     Route: 042
  3. BEVACIZUMAB [Suspect]
     Active Substance: BEVACIZUMAB
     Route: 042
     Dates: start: 20120124, end: 20120306
  4. BEVACIZUMAB [Suspect]
     Active Substance: BEVACIZUMAB
     Route: 042
  5. CAPECITABINE [Suspect]
     Active Substance: CAPECITABINE
     Indication: Gastric cancer
     Dosage: DATE OF MOST RECENT ADMINISTRATION: 27/MAR/2012
     Route: 048
     Dates: start: 20120124, end: 20120327
  6. CAPECITABINE [Suspect]
     Active Substance: CAPECITABINE
     Route: 048
     Dates: start: 20120124
  7. APREPITANT [Suspect]
     Active Substance: APREPITANT
     Indication: Gastric cancer
     Dosage: DATE OF LAST DOSE: 06/MAR/2012
     Route: 048
     Dates: start: 20120124
  8. APREPITANT [Suspect]
     Active Substance: APREPITANT
     Route: 065
  9. EPIRUBICIN [Suspect]
     Active Substance: EPIRUBICIN
     Indication: Gastric cancer
     Dosage: DATE OF MOST RECENT ADMINISTRATION: 06/MAR/2012
     Route: 042
     Dates: start: 20120124
  10. EPIRUBICIN [Suspect]
     Active Substance: EPIRUBICIN
     Route: 042
     Dates: start: 20120124
  11. FUROSEMIDE [Suspect]
     Active Substance: FUROSEMIDE
     Indication: Gastric cancer
     Dosage: DATE OF LAST DOSE: 06/MAR/2012
     Route: 048
     Dates: start: 20120124
  12. FUROSEMIDE [Suspect]
     Active Substance: FUROSEMIDE
     Route: 065
  13. ONDANSETRON [Suspect]
     Active Substance: ONDANSETRON
     Indication: Gastric cancer
     Dosage: DATE OF LAST DOSE: 09/MAR/2012
     Route: 048
     Dates: start: 20120124
  14. ONDANSETRON [Suspect]
     Active Substance: ONDANSETRON
     Route: 048
  15. ONDANSETRON [Suspect]
     Active Substance: ONDANSETRON
     Dosage: DATE OF LAST DOSE: 09/MAR/2012
     Route: 048
     Dates: start: 20120124
  16. DEXAMETHASONE [Suspect]
     Active Substance: DEXAMETHASONE
     Indication: Gastric cancer
     Dosage: DATE OF LAST DOSE: 09/MAR/2012
     Route: 048
     Dates: start: 20120124, end: 20120309
  17. DEXAMETHASONE [Suspect]
     Active Substance: DEXAMETHASONE
     Indication: Gastric cancer
     Route: 048
     Dates: start: 20120124, end: 20120309
  18. EMEND [Suspect]
     Active Substance: APREPITANT
     Indication: Gastric cancer
     Route: 065
  19. EMEND [Suspect]
     Active Substance: APREPITANT
     Route: 048
     Dates: start: 20120124, end: 20120306
  20. CISPLATIN [Suspect]
     Active Substance: CISPLATIN
     Indication: Gastric cancer
     Dosage: DATE OF MOST RECENT ADMINISTRATION: 06/MAR/2012
     Route: 042
     Dates: start: 20120122
  21. CISPLATIN [Suspect]
     Active Substance: CISPLATIN
     Route: 042
     Dates: start: 20120124
  22. LISINOPRIL [Concomitant]
     Active Substance: LISINOPRIL
     Indication: Product used for unknown indication
     Dosage: 5 MG, UNK
     Route: 065
     Dates: start: 200705
  23. SIMVASTATIN [Concomitant]
     Active Substance: SIMVASTATIN
     Indication: Product used for unknown indication
     Dosage: 80 MG, UNK
     Route: 048
     Dates: start: 200503

REACTIONS (4)
  - Diarrhoea [Recovered/Resolved]
  - Abdominal sepsis [Recovered/Resolved]
  - Vomiting [Recovered/Resolved]
  - Febrile neutropenia [Recovered/Resolved]

NARRATIVE: CASE EVENT DATE: 20120313
